FAERS Safety Report 25604452 (Version 1)
Quarter: 2025Q3

REPORT INFORMATION
  Report Type: Spontaneous
  Country: US (occurrence: US)
  Receive Date: 20250725
  Receipt Date: 20250725
  Transmission Date: 20251020
  Serious: No
  Sender: BEIGENE
  Company Number: US-BEIGENE-BGN-2025-011850

PATIENT
  Age: 75 Year

DRUGS (3)
  1. BRUKINSA [Suspect]
     Active Substance: ZANUBRUTINIB
     Indication: Waldenstrom^s macroglobulinaemia
  2. BRUKINSA [Suspect]
     Active Substance: ZANUBRUTINIB
     Dosage: 80 MILLIGRAM, BID
  3. BRUKINSA [Suspect]
     Active Substance: ZANUBRUTINIB

REACTIONS (4)
  - Muscle spasms [Not Recovered/Not Resolved]
  - Back pain [Unknown]
  - Pain in extremity [Unknown]
  - Arthralgia [Not Recovered/Not Resolved]
